FAERS Safety Report 8816189 (Version 1)
Quarter: 2012Q4

REPORT INFORMATION
  Report Type: 
  Country: JP (occurrence: JP)
  Receive Date: 20120929
  Receipt Date: 20120929
  Transmission Date: 20130627
  Serious: Yes (Other)
  Sender: FDA-Public Use
  Company Number: JP-MERCK-1009USA00054

PATIENT
  Age: 80 Year
  Sex: Female

DRUGS (5)
  1. PEPCID [Suspect]
     Route: 048
  2. VESICARE [Suspect]
     Dosage: UNK
     Route: 048
  3. MYSLEE [Suspect]
     Route: 048
  4. GRAMALIL [Suspect]
     Route: 048
  5. ARICEPT [Concomitant]

REACTIONS (1)
  - Dementia [Unknown]
